FAERS Safety Report 6072357-X (Version None)
Quarter: 2009Q1

REPORT INFORMATION
  Report Type: 
  Country: None (occurrence: None)
  Receive Date: 20090210
  Receipt Date: 20090119
  Transmission Date: 20090719
  Serious: Yes (Other)
  Sender: FDA-Public Use
  Company Number: PHHY2009AR02005

PATIENT
  Sex: Male

DRUGS (3)
  1. DIOVAN HCT [Suspect]
     Indication: HYPERTENSION
     Dosage: 160/25 MG DAILY
     Route: 048
  2. DIOVAN HCT [Suspect]
     Dosage: HALF TABLET DAILY
     Route: 048
  3. ALPRAZOLAM [Concomitant]

REACTIONS (2)
  - BLOOD PRESSURE DECREASED [None]
  - GASTROINTESTINAL ULCER [None]
